FAERS Safety Report 11689861 (Version 4)
Quarter: 2015Q4

REPORT INFORMATION
  Report Type: Spontaneous
  Country: US (occurrence: US)
  Receive Date: 20151102
  Receipt Date: 20151126
  Transmission Date: 20160304
  Serious: No
  Sender: FDA-Public Use
  Company Number: US-009507513-1510USA013529

PATIENT
  Age: 24 Year
  Sex: Female
  Weight: 58.96 kg

DRUGS (1)
  1. NEXPLANON [Suspect]
     Active Substance: ETONOGESTREL
     Indication: CONTRACEPTION
     Dosage: UNK
     Route: 059
     Dates: start: 20140729

REACTIONS (3)
  - Medical device complication [Not Recovered/Not Resolved]
  - Unintended pregnancy [Unknown]
  - Pregnancy with implant contraceptive [Unknown]

NARRATIVE: CASE EVENT DATE: 20150522
